FAERS Safety Report 18226631 (Version 2)
Quarter: 2020Q3

REPORT INFORMATION
  Report Type: Spontaneous
  Country: US (occurrence: US)
  Receive Date: 20200903
  Receipt Date: 20200909
  Transmission Date: 20201103
  Serious: Yes (Hospitalization, Other)
  Sender: FDA-Public Use
  Company Number: US-PFIZER INC-2020339891

PATIENT
  Age: 56 Year
  Sex: Male

DRUGS (14)
  1. FLUCONAZOLE. [Concomitant]
     Active Substance: FLUCONAZOLE
     Dosage: UNK
  2. FENTANYL. [Concomitant]
     Active Substance: FENTANYL
     Dosage: UNK
  3. ARGATROBAN. [Suspect]
     Active Substance: ARGATROBAN
     Dosage: UNK(DECREASED OR INCREASED BY 25% FROM THE INITIAL RATE)
  4. PANTOPRAZOLE [Concomitant]
     Active Substance: PANTOPRAZOLE
     Dosage: UNK
  5. PIPERACILLIN/TAZOBACTAM [Concomitant]
     Active Substance: PIPERACILLIN SODIUM\TAZOBACTAM SODIUM
     Dosage: UNK
  6. METHYLPREDNISOLONE. [Concomitant]
     Active Substance: METHYLPREDNISOLONE
     Dosage: UNK
  7. INSULIN ASPART [Concomitant]
     Active Substance: INSULIN ASPART
     Dosage: UNK
  8. LINEZOLID. [Suspect]
     Active Substance: LINEZOLID
     Indication: ANTIPHOSPHOLIPID SYNDROME
     Dosage: UNK
  9. ARGATROBAN. [Suspect]
     Active Substance: ARGATROBAN
     Indication: THROMBOCYTOPENIA
     Dosage: 0.25 UG/KG (FREQ:1 MIN)
  10. DOCUSATE SODIUM. [Concomitant]
     Active Substance: DOCUSATE SODIUM
     Dosage: UNK
  11. INSULIN DETEMIR [Concomitant]
     Active Substance: INSULIN DETEMIR
     Dosage: UNK
  12. NOREPINEPHRINE. [Concomitant]
     Active Substance: NOREPINEPHRINE
     Dosage: UNK
  13. ARGATROBAN. [Suspect]
     Active Substance: ARGATROBAN
     Dosage: 0.5 UG/KG (FREQ:1 MIN;DAY 1 AND 2)
  14. FERROUS SULFATE. [Concomitant]
     Active Substance: FERROUS SULFATE
     Dosage: UNK

REACTIONS (1)
  - Thrombocytopenia [Recovering/Resolving]
